FAERS Safety Report 12987415 (Version 1)
Quarter: 2016Q4

REPORT INFORMATION
  Report Type: Spontaneous
  Country: GB (occurrence: GB)
  Receive Date: 20161130
  Receipt Date: 20161130
  Transmission Date: 20170207
  Serious: Yes (Other)
  Sender: FDA-Public Use
  Company Number: GB-TEVA-714726ACC

PATIENT
  Age: 81 Year
  Sex: Female
  Weight: 52 kg

DRUGS (14)
  1. CLOTRIMAZOLE. [Concomitant]
     Active Substance: CLOTRIMAZOLE
     Dosage: APPLY 2-3 TIMES/DAY
     Dates: start: 20161013, end: 20161014
  2. DEPO-MEDRONE [Concomitant]
     Active Substance: METHYLPREDNISOLONE
     Dosage: USE AS DIRECTED
     Dates: start: 20131114, end: 20160920
  3. LOPRAZOLAM [Concomitant]
     Active Substance: LOPRAZOLAM
     Dosage: .5 DOSAGE FORMS DAILY; NOCTE
     Dates: start: 20141218, end: 20160915
  4. DIAZEPAM. [Concomitant]
     Active Substance: DIAZEPAM
     Dates: start: 20161013
  5. TRIMETHOPRIM. [Concomitant]
     Active Substance: TRIMETHOPRIM
     Dosage: 2 DOSAGE FORMS DAILY;
     Dates: start: 20160825, end: 20160826
  6. LERCANIDIPINE HYDROCHLORIDE [Concomitant]
     Active Substance: LERCANIDIPINE HYDROCHLORIDE
     Dosage: 1 DOSAGE FORMS DAILY;
     Dates: start: 20150610, end: 20160915
  7. MONTELUKAST [Concomitant]
     Active Substance: MONTELUKAST SODIUM
     Dosage: 1 DOSAGE FORMS DAILY; NOCTE
     Dates: start: 20150415, end: 20160915
  8. DERMOL [Concomitant]
     Active Substance: BENZALKONIUM CHLORIDE\CHLORHEXIDINE HYDROCHLORIDE\ISOPROPYL MYRISTATE\PARAFFIN
     Dosage: USE AS DIRECTED
     Dates: start: 20160223
  9. QUININE [Concomitant]
     Active Substance: QUININE
     Dosage: 1 DOSAGE FORMS DAILY; NOCTE
     Dates: start: 20160929
  10. OLOPATADINE [Concomitant]
     Active Substance: OLOPATADINE
     Dosage: THREE TIMES DAILY TO EACH EYE
     Route: 050
     Dates: start: 20160921, end: 20161019
  11. FEXOFENADINE [Concomitant]
     Active Substance: FEXOFENADINE\FEXOFENADINE HYDROCHLORIDE
     Dosage: TAKE ONE OR TWO DAILY
     Dates: start: 20160223
  12. DOXAZOSIN [Suspect]
     Active Substance: DOXAZOSIN\DOXAZOSIN MESYLATE
     Dates: start: 20160727
  13. BENDROFLUMETHIAZIDE [Concomitant]
     Active Substance: BENDROFLUMETHIAZIDE
     Dosage: 1 DOSAGE FORMS DAILY; MORNING
     Dates: start: 20150708
  14. CITALOPRAM [Concomitant]
     Active Substance: CITALOPRAM HYDROBROMIDE
     Dosage: 1 DOSAGE FORMS DAILY;
     Dates: start: 20160412

REACTIONS (2)
  - Joint swelling [Unknown]
  - Abdominal distension [Unknown]

NARRATIVE: CASE EVENT DATE: 20161107
